FAERS Safety Report 5886580-8 (Version None)
Quarter: 2008Q3

REPORT INFORMATION
  Report Type: 
  Country: None (occurrence: None)
  Receive Date: 20080917
  Receipt Date: 20080912
  Transmission Date: 20090109
  Serious: Yes (Other)
  Sender: FDA-Public Use
  Company Number: GB-TEVA-177351ISR

PATIENT
  Age: 60 Year
  Sex: Male
  Weight: 97 kg

DRUGS (2)
  1. BISOPROLOL FUMARATE [Suspect]
     Indication: VENTRICULAR TACHYCARDIA
     Route: 048
  2. BISOPROLOL FUMARATE [Suspect]
     Route: 048
     Dates: start: 20040101

REACTIONS (2)
  - ALVEOLITIS FIBROSING [None]
  - DYSPNOEA [None]
